FAERS Safety Report 9272254 (Version 1)
Quarter: 2013Q2

REPORT INFORMATION
  Report Type: Spontaneous
  Country: US (occurrence: US)
  Receive Date: 20130506
  Receipt Date: 20130506
  Transmission Date: 20140414
  Serious: No
  Sender: FDA-Public Use
  Company Number: US-ASTRAZENECA-2013SE10944

PATIENT
  Sex: Male

DRUGS (2)
  1. PRILOSEC OTC, WILDBERRY FLAVOR [Suspect]
     Route: 048
  2. CARDIOVASCULAR SYSTEM DRUGS [Concomitant]

REACTIONS (4)
  - Condition aggravated [Recovered/Resolved]
  - Vomiting [Recovered/Resolved]
  - Dyspepsia [Recovered/Resolved]
  - Insomnia [Recovered/Resolved]
